FAERS Safety Report 17472586 (Version 1)
Quarter: 2020Q1

REPORT INFORMATION
  Report Type: Spontaneous
  Country: US (occurrence: US)
  Receive Date: 20200228
  Receipt Date: 20200228
  Transmission Date: 20200409
  Serious: No
  Sender: FDA-Public Use
  Company Number: US-MYLANLABS-2020M1019097

PATIENT
  Sex: Female
  Weight: 73 kg

DRUGS (1)
  1. ESTRADIOL TRANSDERMAL SYSTEM [Suspect]
     Active Substance: ESTRADIOL
     Indication: HORMONE REPLACEMENT THERAPY
     Dosage: 0.01 MILLIGRAM, TWICE WEEKLY
     Dates: start: 20200118, end: 20200218

REACTIONS (5)
  - Drug ineffective [Not Recovered/Not Resolved]
  - Back pain [Unknown]
  - Product adhesion issue [Unknown]
  - Rash [Recovered/Resolved]
  - Irritability [Not Recovered/Not Resolved]
